FAERS Safety Report 8579146-2 (Version None)
Quarter: 2012Q3

REPORT INFORMATION
  Report Type: 
  Country: None (occurrence: None)
  Receive Date: 20120726
  Receipt Date: 20120710
  Transmission Date: 20120928
  Serious: Yes (Death)
  Sender: FDA-Public Use
  Company Number: 2012SP000870

PATIENT
  Age: 15 Year
  Sex: Female

DRUGS (11)
  1. CANCIDAS [Suspect]
     Indication: BRONCHOPULMONARY ASPERGILLOSIS
     Dosage: IV
     Route: 042
     Dates: start: 20120528, end: 20120530
  2. CIPROFLOXACIN [Suspect]
     Indication: PRODUCT USED FOR UNKNOWN INDICATION
     Dates: start: 20120528, end: 20120604
  3. FILGRASTIM [Concomitant]
  4. COLISTIN [Concomitant]
  5. ATGAM [Concomitant]
  6. TRIMETHOPRIM + SULFAMETHOXAZOLE [Suspect]
     Indication: PROPHYLAXIS
     Dosage: TID;IV
     Route: 042
     Dates: start: 20120401
  7. VANCOMYCIN [Suspect]
     Indication: BRONCHOPULMONARY ASPERGILLOSIS
     Dosage: 2 GM;IV
     Route: 042
     Dates: start: 20120522
  8. CYCLOSPORINE [Suspect]
     Indication: APLASIA
     Dosage: 200 MG;PO
     Route: 048
     Dates: start: 20120423, end: 20120531
  9. VORICONAZOLE [Suspect]
     Indication: BRONCHOPULMONARY ASPERGILLOSIS
     Dosage: 400 MG;IV
     Route: 042
     Dates: start: 20120514, end: 20120531
  10. GENTAMICIN [Suspect]
     Indication: BRONCHOPULMONARY ASPERGILLOSIS
     Dosage: 170 UG;IV
     Route: 042
     Dates: start: 20120526, end: 20120530
  11. TICARCILLIN DISODIUM/CLAVULANATE POTASSIUM (CLAVENTIN/00973701/) [Suspect]
     Indication: BRONCHOPULMONARY ASPERGILLOSIS
     Dosage: IV
     Route: 042
     Dates: start: 20120528, end: 20120601

REACTIONS (3)
  - RENAL FAILURE ACUTE [None]
  - MULTIPLE DRUG OVERDOSE [None]
  - DRUG INTERACTION [None]
